FAERS Safety Report 5242592-9 (Version None)
Quarter: 2007Q1

REPORT INFORMATION
  Report Type: 
  Country: None (occurrence: None)
  Receive Date: 20070214
  Receipt Date: 20070207
  Transmission Date: 20070707
  Serious: Yes (Hospitalization)
  Sender: FDA-Public Use
  Company Number: 2007SP001309

PATIENT
  Age: 74 Year
  Sex: Female
  Weight: 61.3 kg

DRUGS (12)
  1. TEMOZOLOMIDE (S-P) (125  MG) [Suspect]
     Indication: GLIOBLASTOMA MULTIFORME
     Dosage: 125 MG;QD; PO
     Route: 048
     Dates: start: 20070104, end: 20070124
  2. RADIATION (CON.) [Concomitant]
  3. ZIAC /01166101/ (CON.) [Concomitant]
  4. PROTONIX (CON.) [Concomitant]
  5. AVANDIA (CON.) [Concomitant]
  6. PRANDIN (CON.) [Concomitant]
  7. PHENYTOIN (CON.) [Concomitant]
  8. BACTRIM (CON.) [Concomitant]
  9. XOPONEX (CON.) [Concomitant]
  10. MEGACE (CON.) [Concomitant]
  11. KEPPRA (CON.) [Concomitant]
  12. DEXAMETHASONE (CON.) [Concomitant]

REACTIONS (20)
  - ANOREXIA [None]
  - ATELECTASIS [None]
  - COGNITIVE DISORDER [None]
  - DISEASE PROGRESSION [None]
  - DRUG TOXICITY [None]
  - DYSPHAGIA [None]
  - HAEMOGLOBIN DECREASED [None]
  - HEMIPARESIS [None]
  - HERPES ZOSTER [None]
  - HYPERGLYCAEMIA [None]
  - HYPOALBUMINAEMIA [None]
  - LETHARGY [None]
  - LYMPHOPENIA [None]
  - MUSCULAR WEAKNESS [None]
  - OPPORTUNISTIC INFECTION [None]
  - ORAL INTAKE REDUCED [None]
  - PNEUMONIA [None]
  - REFUSAL OF TREATMENT BY PATIENT [None]
  - SOMNOLENCE [None]
  - WHITE BLOOD CELL COUNT DECREASED [None]
